FAERS Safety Report 20198851 (Version 1)
Quarter: 2021Q4

REPORT INFORMATION
  Report Type: Report from Study
  Country: CA (occurrence: CA)
  Receive Date: 20211217
  Receipt Date: 20211217
  Transmission Date: 20220303
  Serious: Yes (Other)
  Sender: FDA-Public Use
  Company Number: CA-JNJFOC-20211208300

PATIENT
  Age: 62 Year
  Sex: Female

DRUGS (1)
  1. REMICADE [Suspect]
     Active Substance: INFLIXIMAB
     Indication: Colitis ulcerative
     Dosage: THE PATIENT HAD COMPLETED HIS PARTIAL MAYO SURVEY AND HAD HIS LATEST INFUSION ON 09-DEC-2021 (02ND I
     Route: 042
     Dates: start: 20211124

REACTIONS (7)
  - Rectal haemorrhage [Recovered/Resolved]
  - General physical health deterioration [Unknown]
  - Abdominal pain [Unknown]
  - Product container issue [Unknown]
  - Frequent bowel movements [Unknown]
  - Off label use [Unknown]
  - Incorrect dose administered [Unknown]

NARRATIVE: CASE EVENT DATE: 20211124
